FAERS Safety Report 14422214 (Version 2)
Quarter: 2018Q1

REPORT INFORMATION
  Report Type: Report from Study
  Country: US (occurrence: US)
  Receive Date: 20180123
  Receipt Date: 20180307
  Transmission Date: 20180509
  Serious: No
  Sender: FDA-Public Use
  Company Number: US-ALEXION PHARMACEUTICALS INC.-A201800217

PATIENT
  Sex: Female

DRUGS (1)
  1. STRENSIQ [Suspect]
     Active Substance: ASFOTASE ALFA
     Indication: PRODUCT USED FOR UNKNOWN INDICATION
     Route: 065

REACTIONS (8)
  - Blood alkaline phosphatase increased [Unknown]
  - Pain [Unknown]
  - Nasopharyngitis [Unknown]
  - Contusion [Unknown]
  - Rash macular [Unknown]
  - Fatigue [Recovering/Resolving]
  - Pruritus [Recovered/Resolved]
  - Injection site reaction [Unknown]
